FAERS Safety Report 7235387-8 (Version None)
Quarter: 2011Q1

REPORT INFORMATION
  Report Type: 
  Country: None (occurrence: None)
  Receive Date: 20110114
  Receipt Date: 20110114
  Transmission Date: 20110831
  Serious: Yes (Hospitalization)
  Sender: FDA-Public Use
  Company Number: None

PATIENT
  Age: 26 Year
  Sex: Female
  Weight: 78.0187 kg

DRUGS (1)
  1. PEG-ASPARAGINASE [Suspect]
     Indication: ACUTE LEUKAEMIA
     Dosage: 4575 IU ONCE IV
     Route: 042
     Dates: start: 20101213, end: 20101213

REACTIONS (4)
  - FACE INJURY [None]
  - HEAD INJURY [None]
  - CONVULSION [None]
  - UNRESPONSIVE TO STIMULI [None]
